FAERS Safety Report 4508978-2 (Version None)
Quarter: 2004Q4

REPORT INFORMATION
  Report Type: 
  Country: None (occurrence: None)
  Receive Date: 20041122
  Receipt Date: 20041122
  Transmission Date: 20050328
  Serious: Yes (Hospitalization)
  Sender: FDA-Public Use
  Company Number: None

PATIENT
  Age: 60 Year
  Sex: Female
  Weight: 74.8435 kg

DRUGS (1)
  1. VYTORIN [Suspect]
     Indication: BLOOD CHOLESTEROL INCREASED
     Dosage: 1 DAILY
     Dates: start: 20041018, end: 20041108

REACTIONS (5)
  - DEHYDRATION [None]
  - GASTRIC DISORDER [None]
  - HEADACHE [None]
  - NAUSEA [None]
  - VOMITING [None]
